FAERS Safety Report 24610256 (Version 2)
Quarter: 2025Q3

REPORT INFORMATION
  Report Type: Spontaneous
  Country: GB (occurrence: GB)
  Receive Date: 20241112
  Receipt Date: 20250809
  Transmission Date: 20251021
  Serious: Yes (Other)
  Sender: ALEXION PHARMACEUTICALS
  Company Number: GB-MHRA-EMIS-1980-f60b98e1-ee1d-4f17-9b36-afa77602a27c

PATIENT
  Age: 57 Year
  Sex: Female
  Weight: 74 kg

DRUGS (5)
  1. DAPAGLIFLOZIN [Suspect]
     Active Substance: DAPAGLIFLOZIN
     Dosage: UNK, QD
     Dates: start: 20240613, end: 20241023
  2. CYCLIZINE [Concomitant]
     Active Substance: CYCLIZINE
     Dosage: UNK, TID
     Route: 065
     Dates: start: 20240812, end: 20240910
  3. INFLUENZA VIRUS VACCINE QUADRIVALENT TYPE A+B [Concomitant]
     Active Substance: INFLUENZA VIRUS VACCINE QUADRIVALENT TYPE A+B
     Route: 065
  4. SPIKEVAX [Concomitant]
     Active Substance: CX-046684
  5. MOUNJARO [Concomitant]
     Active Substance: TIRZEPATIDE
     Indication: Type 2 diabetes mellitus
     Dosage: 0.6 MILLILITER, QW
     Dates: start: 20241017

REACTIONS (2)
  - Muscle spasms [Unknown]
  - Muscle spasms [Recovered/Resolved]
